FAERS Safety Report 18926227 (Version 1)
Quarter: 2021Q1

REPORT INFORMATION
  Report Type: Spontaneous
  Country: GB (occurrence: GB)
  Receive Date: 20210223
  Receipt Date: 20210223
  Transmission Date: 20210420
  Serious: Yes (Other)
  Sender: FDA-Public Use
  Company Number: GB-AMGEN-GBRSP2021027617

PATIENT
  Sex: Male
  Weight: 111.6 kg

DRUGS (3)
  1. DISODIUM FOLINATE [Concomitant]
     Active Substance: LEUCOVORIN SODIUM
     Indication: ILL-DEFINED DISORDER
     Dosage: UNK
     Route: 065
  2. OXALIPLATIN. [Concomitant]
     Active Substance: OXALIPLATIN
     Indication: ILL-DEFINED DISORDER
     Dosage: UNK
     Route: 065
  3. VECTIBIX [Suspect]
     Active Substance: PANITUMUMAB
     Indication: SYNCOPE
     Dosage: 700 MILLIGRAM
     Route: 042
     Dates: start: 20210218, end: 20210218

REACTIONS (2)
  - Syncope [Recovered/Resolved]
  - Abdominal pain upper [Recovered/Resolved]
